FAERS Safety Report 8738220 (Version 2)
Quarter: 2012Q4

REPORT INFORMATION
  Report Type: 
  Country: US (occurrence: US)
  Receive Date: 20120823
  Receipt Date: 20120926
  Transmission Date: 20130627
  Serious: No
  Sender: FDA-Public Use
  Company Number: US-PFIZER INC-2012204039

PATIENT
  Age: 14 Year
  Sex: Male
  Weight: 65.76 kg

DRUGS (3)
  1. GEODON [Suspect]
     Indication: BIPOLAR DISORDER
     Dosage: 80 mg, 1x/day
     Route: 048
     Dates: start: 2005
  2. TOPAMAX [Concomitant]
     Indication: BIPOLAR DISORDER
     Dosage: UNK
  3. MELATONIN [Concomitant]
     Dosage: UNK

REACTIONS (2)
  - Sleep disorder [Unknown]
  - Therapeutic response unexpected [Unknown]
